FAERS Safety Report 7512487-6 (Version None)
Quarter: 2011Q2

REPORT INFORMATION
  Report Type: 
  Country: None (occurrence: None)
  Receive Date: 20110520
  Receipt Date: 20110512
  Transmission Date: 20111010
  Serious: Yes (Hospitalization)
  Sender: FDA-Public Use
  Company Number: 2010001056

PATIENT
  Age: 57 Year
  Sex: Female

DRUGS (6)
  1. LEVOFLOXACIN [Concomitant]
  2. GRILINCTUS [Concomitant]
  3. LOPERAMIDE HYDROCHLORIDE [Concomitant]
  4. OMEPRAZOLE [Concomitant]
  5. AZITHROMYCIN [Concomitant]
  6. ERLOTINIB HYDROCHLORIDE [Suspect]
     Indication: NON-SMALL CELL LUNG CANCER
     Dosage: 150 MG, QD, ORAL
     Route: 048
     Dates: start: 20090814, end: 20091001

REACTIONS (7)
  - DYSPNOEA [None]
  - PYREXIA [None]
  - UPPER RESPIRATORY TRACT INFECTION [None]
  - VOMITING [None]
  - DIARRHOEA [None]
  - COUGH [None]
  - GASTROINTESTINAL DISORDER [None]
